FAERS Safety Report 14837931 (Version 1)
Quarter: 2018Q2

REPORT INFORMATION
  Report Type: Spontaneous
  Country: JP (occurrence: JP)
  Receive Date: 20180502
  Receipt Date: 20180502
  Transmission Date: 20180711
  Serious: Yes (Disabling)
  Sender: FDA-Public Use
  Company Number: JP-PFIZER INC-2018172408

PATIENT
  Age: 55 Year
  Sex: Female

DRUGS (2)
  1. RHEUMATREX [Suspect]
     Active Substance: METHOTREXATE SODIUM
     Dosage: UNK
     Route: 048
  2. RIMATIL [Suspect]
     Active Substance: BUCILLAMINE
     Dosage: UNK
     Route: 048

REACTIONS (2)
  - Bone disorder [Recovered/Resolved]
  - Cushingoid [Recovered/Resolved with Sequelae]
